FAERS Safety Report 19679205 (Version 2)
Quarter: 2021Q3

REPORT INFORMATION
  Report Type: Report from Study
  Country: BR (occurrence: BR)
  Receive Date: 20210809
  Receipt Date: 20210823
  Transmission Date: 20211014
  Serious: Yes (Other)
  Sender: FDA-Public Use
  Company Number: NVSC2021BR178396

PATIENT
  Age: 56 Year
  Sex: Female

DRUGS (4)
  1. EXELON [Suspect]
     Active Substance: RIVASTIGMINE TARTRATE
     Indication: CORTICOBASAL DEGENERATION
     Dosage: 4.6 MG, QD (9.0 MG RIVASTIGMINE BASE (PATCH 5.0 (CM2))
     Route: 065
     Dates: start: 201601
  2. STABIL [Concomitant]
     Active Substance: PRAMIPEXOLE DIHYDROCHLORIDE
     Indication: CORTICOBASAL DEGENERATION
     Dosage: 1 DF
     Route: 065
     Dates: start: 201601
  3. PROLOPA [Concomitant]
     Active Substance: BENSERAZIDE\LEVODOPA
     Indication: CORTICOBASAL DEGENERATION
     Dosage: 1 DF, TID
     Route: 048
     Dates: start: 201601
  4. EBIX [Concomitant]
     Active Substance: MEMANTINE HYDROCHLORIDE
     Indication: CORTICOBASAL DEGENERATION
     Dosage: 1 DF, QD
     Route: 048
     Dates: start: 201601

REACTIONS (7)
  - Corticobasal degeneration [Not Recovered/Not Resolved]
  - Drug ineffective for unapproved indication [Not Recovered/Not Resolved]
  - Depression [Not Recovered/Not Resolved]
  - Product prescribing error [Unknown]
  - Disease progression [Not Recovered/Not Resolved]
  - Anxiety [Not Recovered/Not Resolved]
  - Product use in unapproved indication [Not Recovered/Not Resolved]

NARRATIVE: CASE EVENT DATE: 201601
